FAERS Safety Report 15833020 (Version 1)
Quarter: 2019Q1

REPORT INFORMATION
  Report Type: Report from Study
  Country: US (occurrence: US)
  Receive Date: 20190116
  Receipt Date: 20190116
  Transmission Date: 20190417
  Serious: No
  Sender: FDA-Public Use
  Company Number: US-JNJFOC-20190113414

PATIENT
  Sex: Female

DRUGS (1)
  1. STELARA [Suspect]
     Active Substance: USTEKINUMAB
     Indication: CROHN^S DISEASE
     Route: 058
     Dates: start: 201806

REACTIONS (2)
  - Nasopharyngitis [Not Recovered/Not Resolved]
  - Hepatic enzyme increased [Unknown]

NARRATIVE: CASE EVENT DATE: 2018
